FAERS Safety Report 24104582 (Version 1)
Quarter: 2024Q3

REPORT INFORMATION
  Report Type: Spontaneous
  Country: CN (occurrence: CN)
  Receive Date: 20240717
  Receipt Date: 20240717
  Transmission Date: 20241016
  Serious: Yes (Other)
  Sender: PFIZER
  Company Number: CN-PFIZER INC-PV202400091991

PATIENT
  Age: 17 Year
  Sex: Male
  Weight: 48 kg

DRUGS (2)
  1. CYTARABINE [Suspect]
     Active Substance: CYTARABINE
     Indication: Chemotherapy
     Dosage: 100 MG, 2X/DAY (12H)
     Route: 041
     Dates: start: 20240515, end: 20240525
  2. CYTARABINE [Suspect]
     Active Substance: CYTARABINE
     Indication: Leukaemia

REACTIONS (2)
  - Palpitations [Recovered/Resolved]
  - Heart rate increased [Recovered/Resolved]

NARRATIVE: CASE EVENT DATE: 20240517
